FAERS Safety Report 23529017 (Version 2)
Quarter: 2024Q1

REPORT INFORMATION
  Report Type: Report from Study
  Country: US (occurrence: US)
  Receive Date: 20240216
  Receipt Date: 20240305
  Transmission Date: 20240410
  Serious: Yes (Other)
  Sender: FDA-Public Use
  Company Number: US-ABBVIE-5636649

PATIENT
  Age: 64 Year
  Sex: Female
  Weight: 65.77 kg

DRUGS (7)
  1. RINVOQ [Suspect]
     Active Substance: UPADACITINIB
     Indication: Rheumatoid arthritis
     Dosage: FORM STRENGTH WAS 15 MILLIGRAMS
     Route: 048
     Dates: start: 20230211, end: 20240130
  2. RINVOQ [Suspect]
     Active Substance: UPADACITINIB
     Indication: Rheumatoid arthritis
     Route: 048
     Dates: start: 20220110
  3. RESTASIS [Concomitant]
     Active Substance: CYCLOSPORINE
     Indication: Dry eye
  4. CALCIUM [Concomitant]
     Active Substance: CALCIUM
     Indication: Mineral supplementation
  5. TRELEGY ELLIPTA [Concomitant]
     Active Substance: FLUTICASONE FUROATE\UMECLIDINIUM BROMIDE\VILANTEROL TRIFENATATE
     Indication: Asthma
  6. ALBUTEROL [Concomitant]
     Active Substance: ALBUTEROL
     Indication: Asthma
  7. GABAPENTIN [Concomitant]
     Active Substance: GABAPENTIN
     Indication: Neuralgia

REACTIONS (9)
  - Staphylococcal infection [Recovering/Resolving]
  - Cellulitis [Recovering/Resolving]
  - Wound [Recovering/Resolving]
  - Skin warm [Recovering/Resolving]
  - Pruritus [Not Recovered/Not Resolved]
  - Pain [Recovering/Resolving]
  - Abscess [Recovering/Resolving]
  - Oral mucosal blistering [Recovered/Resolved]
  - Stomatitis [Unknown]

NARRATIVE: CASE EVENT DATE: 20231101
